FAERS Safety Report 7932621-3 (Version None)
Quarter: 2011Q4

REPORT INFORMATION
  Report Type: 
  Country: None (occurrence: None)
  Receive Date: 20111122
  Receipt Date: 20111117
  Transmission Date: 20120403
  Serious: No
  Sender: FDA-Public Use
  Company Number: US-BIOGENIDEC-2011BI044025

PATIENT
  Sex: Female

DRUGS (1)
  1. AVONEX [Suspect]
     Indication: MULTIPLE SCLEROSIS
     Route: 030
     Dates: start: 20111104, end: 20111104

REACTIONS (4)
  - INCREASED TENDENCY TO BRUISE [None]
  - CONTUSION [None]
  - HYPOAESTHESIA [None]
  - PARAESTHESIA [None]
